FAERS Safety Report 4795418-1 (Version None)
Quarter: 2005Q4

REPORT INFORMATION
  Report Type: 
  Country: None (occurrence: None)
  Receive Date: 20051007
  Receipt Date: 20050926
  Transmission Date: 20060501
  Serious: Yes (Hospitalization)
  Sender: FDA-Public Use
  Company Number: 6017514

PATIENT
  Age: 83 Year
  Sex: Male

DRUGS (7)
  1. CARDENSIEL  (BISOPROLOL) [Suspect]
     Dosage: 2, 5 MG (2,5 MG1 D) ORAL
     Route: 048
  2. IKOREL                          (NICORANDIL) [Suspect]
     Dosage: 20 MG (20 MG, 1 D) ORAL
     Route: 048
  3. RAMIPRIL [Suspect]
     Dosage: 5 MG (5 MG, 1 D) ORAL
     Route: 048
  4. AMLODIPINE BESYLATE [Suspect]
     Dosage: 5 MG (5 MG, 1 D) ORAL
     Route: 048
  5. KARDEGIC                       (ACETYLSALICYLATE LYSINE) [Concomitant]
  6. MIXTARD HUMAN 70/30 [Concomitant]
  7. PENFILL               (INSULIN HUMAN INJECTION, ISOPHANE) [Concomitant]

REACTIONS (4)
  - DRUG INTERACTION [None]
  - LOSS OF CONSCIOUSNESS [None]
  - MALAISE [None]
  - ORTHOSTATIC HYPOTENSION [None]
